FAERS Safety Report 24667645 (Version 4)
Quarter: 2025Q1

REPORT INFORMATION
  Report Type: Report from Study
  Country: CA (occurrence: CA)
  Receive Date: 20241126
  Receipt Date: 20250227
  Transmission Date: 20250408
  Serious: Yes (Other)
  Sender: JOHNSON AND JOHNSON
  Company Number: CA-JNJFOC-20241129593

PATIENT
  Age: 56 Year
  Sex: Female

DRUGS (1)
  1. REMICADE [Suspect]
     Active Substance: INFLIXIMAB
     Indication: Osteoporosis
     Route: 041
     Dates: start: 20200106

REACTIONS (5)
  - Joint swelling [Recovering/Resolving]
  - Lower respiratory tract infection [Unknown]
  - Influenza [Unknown]
  - Post procedural discharge [Unknown]
  - Off label use [Unknown]

NARRATIVE: CASE EVENT DATE: 20241108
